FAERS Safety Report 4559802-3 (Version None)
Quarter: 2005Q1

REPORT INFORMATION
  Report Type: 
  Country: None (occurrence: None)
  Receive Date: 20050107
  Receipt Date: 20040811
  Transmission Date: 20050727
  Serious: Yes (Other)
  Sender: FDA-Public Use
  Company Number: DSA_24814_2004

PATIENT
  Age: 66 Year
  Sex: Female
  Weight: 76.2043 kg

DRUGS (4)
  1. CARDIZEM [Suspect]
     Indication: CARDIAC DISORDER
     Dosage: 30 MG QID PO
     Route: 048
     Dates: start: 19910101
  2. PRAVACHOL [Concomitant]
  3. LANOXIN [Concomitant]
  4. ECOTRIN [Concomitant]

REACTIONS (1)
  - OEDEMA PERIPHERAL [None]
